FAERS Safety Report 15660526 (Version 1)
Quarter: 2018Q4

REPORT INFORMATION
  Report Type: Spontaneous
  Country: US (occurrence: US)
  Receive Date: 20181119
  Receipt Date: 20181119
  Transmission Date: 20190205
  Serious: No
  Sender: FDA-Public Use
  Company Number: None

PATIENT
  Age: 8 Year
  Sex: Female

DRUGS (1)
  1. METHLPHENIDATE 20 MG SR MALLINCKRODT [Suspect]
     Active Substance: METHYLPHENIDATE
     Dosage: ?          OTHER FREQUENCY:QAM ;?
     Route: 048
     Dates: start: 20180701

REACTIONS (2)
  - Product quality issue [None]
  - Drug effect decreased [None]

NARRATIVE: CASE EVENT DATE: 20181030
